FAERS Safety Report 7545049-5 (Version None)
Quarter: 2011Q2

REPORT INFORMATION
  Report Type: 
  Country: None (occurrence: None)
  Receive Date: 20110614
  Receipt Date: 20110106
  Transmission Date: 20111010
  Serious: Yes (Hospitalization, Other)
  Sender: FDA-Public Use
  Company Number: US-BAYER-201035854NA

PATIENT
  Age: 18 Year
  Sex: Female
  Weight: 86.168 kg

DRUGS (6)
  1. LOESTRIN 1.5/30 [Concomitant]
  2. NAPROXEN (ALEVE) [Concomitant]
  3. YASMIN [Suspect]
     Indication: PRODUCT USED FOR UNKNOWN INDICATION
     Dosage: UNK UNK, UNK
     Route: 048
     Dates: start: 20050701, end: 20090101
  4. BACTRIM [Concomitant]
     Dosage: ON BACTRIM ON 05-AUG-2005
  5. YAZ [Suspect]
     Indication: PRODUCT USED FOR UNKNOWN INDICATION
     Dosage: UNK UNK, UNK
     Route: 048
     Dates: start: 20050701, end: 20090901
  6. CELEXA [Concomitant]
     Indication: ANXIETY
     Dosage: UNK
     Dates: start: 20090101

REACTIONS (4)
  - CHOLECYSTITIS INFECTIVE [None]
  - CHOLECYSTITIS [None]
  - CHOLECYSTITIS CHRONIC [None]
  - CHOLELITHIASIS [None]
